FAERS Safety Report 8320933-3 (Version None)
Quarter: 2012Q2

REPORT INFORMATION
  Report Type: 
  Country: None (occurrence: None)
  Receive Date: 20120430
  Receipt Date: 20120424
  Transmission Date: 20120825
  Serious: Yes (Other)
  Sender: FDA-Public Use
  Company Number: PHFR2012GB001452

PATIENT
  Sex: Male

DRUGS (8)
  1. VALPROATE SODIUM [Concomitant]
     Indication: PANIC ATTACK
     Dosage: 500 MG, UNK
     Route: 048
  2. LOPERAMIDE [Concomitant]
     Indication: DIARRHOEA
     Dosage: 2 MG, DAILY
  3. CITALOPRAM [Concomitant]
     Indication: DEPRESSION
     Dosage: 40 MG, UNK
     Route: 048
  4. HYOSCINE HBR HYT [Concomitant]
     Dosage: UNK UKN, PRN
     Route: 048
  5. ACETAMINOPHEN AND CODEINE PHOSPHATE [Concomitant]
     Indication: PAIN
     Dosage: 1-2 TAB
     Route: 048
  6. CLONAZEPAM [Concomitant]
     Indication: ANXIETY
     Dosage: 500 MG, UNK
     Route: 048
  7. CLOZARIL [Suspect]
     Indication: SCHIZOPHRENIA
     Dosage: 600 MG
     Route: 048
     Dates: start: 20010701
  8. CLOZARIL [Suspect]
     Dosage: 200 MG, DAILY
     Route: 048

REACTIONS (2)
  - COLON CANCER [None]
  - DIFFERENTIAL WHITE BLOOD CELL COUNT ABNORMAL [None]
